FAERS Safety Report 21017331 (Version 1)
Quarter: 2022Q2

REPORT INFORMATION
  Report Type: Spontaneous
  Country: US (occurrence: None)
  Receive Date: 20220627
  Receipt Date: 20220627
  Transmission Date: 20220721
  Serious: Yes (Hospitalization)
  Sender: FDA-Public Use
  Company Number: None

PATIENT
  Age: 34 Year
  Sex: Male
  Weight: 125.64 kg

DRUGS (1)
  1. EMPAGLIFLOZIN [Suspect]
     Active Substance: EMPAGLIFLOZIN
     Dosage: FREQUENCY : DAILY;?
     Route: 048
     Dates: start: 20191127, end: 20211118

REACTIONS (11)
  - Tachypnoea [None]
  - Nausea [None]
  - Vomiting [None]
  - Tachycardia [None]
  - Dehydration [None]
  - Fatigue [None]
  - Dyspnoea [None]
  - Diabetic ketoacidosis [None]
  - Vertigo [None]
  - Pain [None]
  - Chest pain [None]

NARRATIVE: CASE EVENT DATE: 20211119
